FAERS Safety Report 4746838-2 (Version None)
Quarter: 2005Q3

REPORT INFORMATION
  Report Type: 
  Country: None (occurrence: None)
  Receive Date: 20050815
  Receipt Date: 20050805
  Transmission Date: 20060218
  Serious: Yes (Other)
  Sender: FDA-Public Use
  Company Number: FR-2005-015722

PATIENT
  Age: 51 Year
  Sex: Female

DRUGS (4)
  1. MIRENA [Suspect]
     Dosage: 20 ?G/DAY, CONT, ITNRA-UTERINE
     Route: 015
     Dates: start: 20031201
  2. LEVOTHYROXINE SODIUM [Concomitant]
  3. ZOLOFT [Concomitant]
  4. ATACAND [Concomitant]

REACTIONS (3)
  - COLITIS ULCERATIVE [None]
  - GASTROINTESTINAL MUCOSAL DISORDER [None]
  - THROMBOSIS [None]
